FAERS Safety Report 14498659 (Version 3)
Quarter: 2018Q2

REPORT INFORMATION
  Report Type: Report from Study
  Country: US (occurrence: US)
  Receive Date: 20180207
  Receipt Date: 20180526
  Transmission Date: 20180711
  Serious: No
  Sender: FDA-Public Use
  Company Number: PHEH2018US003951

PATIENT
  Sex: Male

DRUGS (2)
  1. COSENTYX [Suspect]
     Active Substance: SECUKINUMAB
     Indication: PSORIASIS
     Dosage: 300 MG, QW
     Route: 058
  2. COSENTYX [Suspect]
     Active Substance: SECUKINUMAB
     Dosage: 300 MG, QMO
     Route: 058

REACTIONS (9)
  - Erythema [Unknown]
  - Nasopharyngitis [Unknown]
  - Hypoacusis [Unknown]
  - Pruritus [Recovered/Resolved]
  - Urticaria [Unknown]
  - Pruritus [Unknown]
  - Drug hypersensitivity [Unknown]
  - Swollen tongue [Unknown]
  - Paranasal sinus discomfort [Unknown]
